FAERS Safety Report 5514816-1 (Version None)
Quarter: 2007Q4

REPORT INFORMATION
  Report Type: 
  Country: None (occurrence: None)
  Receive Date: 20071113
  Receipt Date: 20071105
  Transmission Date: 20080405
  Serious: Yes (Hospitalization)
  Sender: FDA-Public Use
  Company Number: US-SHR-US-2007-042085

PATIENT
  Age: 17 Year
  Sex: Female

DRUGS (2)
  1. BETASERON [Suspect]
     Indication: MULTIPLE SCLEROSIS
     Dosage: 8 MIU, EVERY 2D
     Route: 058
     Dates: start: 20070529
  2. SOLU-MEDROL [Suspect]
     Dosage: 1 G, UNK
     Route: 042
     Dates: start: 20071003, end: 20071005

REACTIONS (2)
  - DYSPNOEA [None]
  - VISUAL DISTURBANCE [None]
